FAERS Safety Report 13418701 (Version 1)
Quarter: 2017Q2

REPORT INFORMATION
  Report Type: Spontaneous
  Country: US (occurrence: US)
  Receive Date: 20170406
  Receipt Date: 20170406
  Transmission Date: 20170830
  Serious: Yes (Hospitalization, Other)
  Sender: FDA-Public Use
  Company Number: US-AMGEN-USASP2017049721

PATIENT
  Age: 77 Year
  Sex: Male

DRUGS (4)
  1. ENTRESTO [Concomitant]
     Active Substance: SACUBITRIL\VALSARTAN
     Dosage: UNK
  2. CORLANOR [Suspect]
     Active Substance: IVABRADINE HYDROCHLORIDE
     Indication: CARDIAC DISORDER
     Dosage: 7.5 MG, BID
     Route: 065
  3. COUMADIN [Concomitant]
     Active Substance: WARFARIN SODIUM
     Dosage: UNK
  4. ENTRESTO [Concomitant]
     Active Substance: SACUBITRIL\VALSARTAN
     Dosage: UNK, DOSE DOUBLE
     Dates: start: 20170329

REACTIONS (7)
  - Cardiac disorder [Unknown]
  - Somnolence [Unknown]
  - Fatigue [Unknown]
  - Fluid retention [Unknown]
  - Procedural complication [Unknown]
  - Bladder cancer [Unknown]
  - Procedural haemorrhage [Unknown]

NARRATIVE: CASE EVENT DATE: 201603
